FAERS Safety Report 9135557 (Version 1)
Quarter: 2013Q1

REPORT INFORMATION
  Report Type: Spontaneous
  Country: ES (occurrence: ES)
  Receive Date: 20130304
  Receipt Date: 20130304
  Transmission Date: 20140127
  Serious: Yes (Other)
  Sender: FDA-Public Use
  Company Number: PHHY2013ES019361

PATIENT
  Age: 43 Year
  Sex: Male

DRUGS (6)
  1. PREDNISONE [Suspect]
     Indication: LEPROMATOUS LEPROSY
     Dosage: 30 MG, DAILY
  2. THALIDOMIDE [Suspect]
     Indication: LEPROMATOUS LEPROSY
     Dosage: 150 MG, DAILY
  3. RIFAMPICIN [Concomitant]
     Indication: LEPROMATOUS LEPROSY
     Dosage: 600 MG, DAILY
  4. CLOFAZIMINE [Concomitant]
     Indication: LEPROMATOUS LEPROSY
     Dosage: 50 MG, DAILY
  5. CLOFAZIMINE [Concomitant]
     Dosage: 300 G, ON THE FIRST DAY OF THE MONTH
  6. SULFONE [Concomitant]
     Indication: LEPROMATOUS LEPROSY
     Dosage: 100 MG, DAILY

REACTIONS (4)
  - Deep vein thrombosis [Recovered/Resolved]
  - Oedema peripheral [Recovered/Resolved]
  - Pain in extremity [Recovered/Resolved]
  - Type 2 lepra reaction [Unknown]
